FAERS Safety Report 9225895 (Version 1)
Quarter: 2013Q2

REPORT INFORMATION
  Report Type: Spontaneous
  Country: US (occurrence: US)
  Receive Date: 20130411
  Receipt Date: 20130411
  Transmission Date: 20140414
  Serious: No
  Sender: FDA-Public Use
  Company Number: US-ASTELLAS-2012US006410

PATIENT
  Sex: 0

DRUGS (3)
  1. PROTOPIC [Suspect]
     Indication: LIP DRY
     Dosage: USED ON LIPS
     Route: 061
     Dates: start: 20120620, end: 201206
  2. PROTOPIC [Suspect]
     Indication: SCAR
  3. NONE [Concomitant]
     Indication: PRODUCT USED FOR UNKNOWN INDICATION
     Dosage: UNK
     Route: 065

REACTIONS (3)
  - Off label use [Unknown]
  - Chest pain [Unknown]
  - Abdominal pain [Unknown]
